FAERS Safety Report 10176536 (Version 1)
Quarter: 2014Q2

REPORT INFORMATION
  Report Type: Report from Study
  Country: CA (occurrence: CA)
  Receive Date: 20140516
  Receipt Date: 20140516
  Transmission Date: 20141212
  Serious: Yes (Other)
  Sender: FDA-Public Use
  Company Number: CA-JNJFOC-20140507407

PATIENT
  Age: 25 Year
  Sex: Female
  Weight: 57.8 kg

DRUGS (4)
  1. REMICADE [Suspect]
     Indication: CROHN^S DISEASE
     Route: 042
  2. ASACOL [Concomitant]
     Route: 065
  3. IMURAN [Concomitant]
     Route: 065
  4. PANTOLOC [Concomitant]
     Route: 065

REACTIONS (3)
  - Ileostomy [Unknown]
  - Intestinal resection [Unknown]
  - Asthenia [Unknown]
